FAERS Safety Report 24277474 (Version 1)
Quarter: 2024Q3

REPORT INFORMATION
  Report Type: Spontaneous
  Country: DK (occurrence: DK)
  Receive Date: 20240903
  Receipt Date: 20240903
  Transmission Date: 20241017
  Serious: Yes (Hospitalization, Other)
  Sender: TEVA
  Company Number: None

PATIENT
  Age: 18 Year
  Sex: Male
  Weight: 51 kg

DRUGS (1)
  1. ISOTRETINOIN [Suspect]
     Active Substance: ISOTRETINOIN
     Indication: Acne
     Dosage: ISOTRETINOIN TEVA, DOSAGE INCREASED FROM 20 MG ONCE DAILY ON 02MAR2024. STOP DATE: A FEW DAYS BEF...
     Route: 048
     Dates: start: 202312, end: 202403

REACTIONS (8)
  - Hepatitis toxic [Recovering/Resolving]
  - Chromaturia [Recovering/Resolving]
  - Abdominal pain upper [Recovering/Resolving]
  - Faeces pale [Unknown]
  - Ocular icterus [Unknown]
  - Myalgia [Unknown]
  - Nausea [Recovering/Resolving]
  - Fatigue [Unknown]

NARRATIVE: CASE EVENT DATE: 20240301
